FAERS Safety Report 8396251-4 (Version None)
Quarter: 2012Q2

REPORT INFORMATION
  Report Type: 
  Country: None (occurrence: None)
  Receive Date: 20120530
  Receipt Date: 20120517
  Transmission Date: 20120825
  Serious: Yes (Other)
  Sender: FDA-Public Use
  Company Number: US-ROCHE-791244

PATIENT
  Sex: Female
  Weight: 52.21 kg

DRUGS (1)
  1. ACCUTANE [Suspect]
     Indication: ACNE
     Route: 065

REACTIONS (9)
  - VITAMIN D DEFICIENCY [None]
  - GASTRITIS [None]
  - DEPRESSION [None]
  - DEHYDRATION [None]
  - INFLAMMATORY BOWEL DISEASE [None]
  - EMOTIONAL DISTRESS [None]
  - COLITIS ULCERATIVE [None]
  - STRESS [None]
  - GASTROENTERITIS VIRAL [None]
